FAERS Safety Report 20154863 (Version 2)
Quarter: 2021Q4

REPORT INFORMATION
  Report Type: Report from Study
  Country: JP (occurrence: JP)
  Receive Date: 20211207
  Receipt Date: 20211209
  Transmission Date: 20220303
  Serious: Yes (Other)
  Sender: FDA-Public Use
  Company Number: JP-CHUGAI-A2020044607ROCHE

PATIENT
  Age: 56 Year
  Sex: Male
  Weight: 63 kg

DRUGS (22)
  1. BEVACIZUMAB [Suspect]
     Active Substance: BEVACIZUMAB
     Indication: Rectal cancer
     Route: 041
     Dates: start: 20200825, end: 20200825
  2. BEVACIZUMAB [Suspect]
     Active Substance: BEVACIZUMAB
     Dosage: DAY1
     Route: 041
     Dates: start: 20200915, end: 20201027
  3. BEVACIZUMAB [Suspect]
     Active Substance: BEVACIZUMAB
     Dosage: DAY1
     Route: 041
     Dates: start: 20201124, end: 20201222
  4. BEVACIZUMAB [Suspect]
     Active Substance: BEVACIZUMAB
     Dosage: DAY1
     Route: 041
     Dates: start: 20210105, end: 20210608
  5. BEVACIZUMAB [Suspect]
     Active Substance: BEVACIZUMAB
     Dosage: UNK UNK, QD
     Route: 041
     Dates: start: 20210629, end: 20210629
  6. BEVACIZUMAB [Suspect]
     Active Substance: BEVACIZUMAB
     Dosage: UNK, ONCE/2WEEKS
     Route: 041
     Dates: start: 20210727
  7. IRINOTECAN HYDROCHLORIDE [Concomitant]
     Active Substance: IRINOTECAN HYDROCHLORIDE
     Indication: Rectal cancer
     Dosage: DAY1
     Route: 041
     Dates: start: 20200825, end: 20200825
  8. IRINOTECAN HYDROCHLORIDE [Concomitant]
     Active Substance: IRINOTECAN HYDROCHLORIDE
     Dosage: DAY1
     Route: 041
     Dates: start: 20200915
  9. OXALIPLATIN [Concomitant]
     Active Substance: OXALIPLATIN
     Indication: Rectal cancer
     Dosage: DAY1
     Route: 041
     Dates: start: 20200825, end: 20200825
  10. OXALIPLATIN [Concomitant]
     Active Substance: OXALIPLATIN
     Dosage: DAY1
     Route: 041
     Dates: start: 20200915
  11. FLUOROURACIL [Concomitant]
     Active Substance: FLUOROURACIL
     Indication: Rectal cancer
     Dosage: UNCERTAIN DOSAGE AND DAY1-3
     Route: 040
     Dates: start: 20200825, end: 20200827
  12. FLUOROURACIL [Concomitant]
     Active Substance: FLUOROURACIL
     Dosage: DAY1-3
     Route: 041
     Dates: start: 20200825, end: 20200827
  13. FLUOROURACIL [Concomitant]
     Active Substance: FLUOROURACIL
     Dosage: UNCERTAIN DOSAGE AND DAY1-3
     Route: 040
     Dates: start: 20200915
  14. FLUOROURACIL [Concomitant]
     Active Substance: FLUOROURACIL
     Dosage: DAY1-3
     Route: 041
     Dates: start: 20200915
  15. LEVOLEUCOVORIN CALCIUM [Concomitant]
     Active Substance: LEVOLEUCOVORIN CALCIUM
     Indication: Rectal cancer
     Dosage: DAY1
     Route: 041
     Dates: start: 20200825, end: 20200825
  16. LEVOLEUCOVORIN CALCIUM [Concomitant]
     Active Substance: LEVOLEUCOVORIN CALCIUM
     Dosage: DAY1
     Route: 041
     Dates: start: 20200915
  17. PALONOSETRON HYDROCHLORIDE [Concomitant]
     Active Substance: PALONOSETRON HYDROCHLORIDE
     Dosage: DAY1
     Route: 042
     Dates: start: 20200915
  18. DEXAMETHASONE SODIUM PHOSPHATE [Concomitant]
     Active Substance: DEXAMETHASONE SODIUM PHOSPHATE
     Dosage: DAY1
     Route: 042
     Dates: start: 20200915
  19. DEXAMETHASONE [Concomitant]
     Active Substance: DEXAMETHASONE
     Dosage: DAY2-4
     Route: 048
     Dates: start: 20200916
  20. APREPITANT [Concomitant]
     Active Substance: APREPITANT
     Dosage: DAY2-3
     Route: 048
     Dates: start: 20200915
  21. APREPITANT [Concomitant]
     Active Substance: APREPITANT
     Dosage: DAY2-3
     Route: 048
     Dates: start: 20200916
  22. LOPERAMIDE HYDROCHLORIDE [Concomitant]
     Active Substance: LOPERAMIDE HYDROCHLORIDE
     Dosage: DOSAGE IS UNCERTAIN.
     Route: 065

REACTIONS (2)
  - Peripheral sensory neuropathy [Recovered/Resolved]
  - Neutrophil count decreased [Recovered/Resolved]

NARRATIVE: CASE EVENT DATE: 20200908
